FAERS Safety Report 9030543 (Version 1)
Quarter: 2013Q1

REPORT INFORMATION
  Report Type: Spontaneous
  Country: FR (occurrence: FR)
  Receive Date: 20130122
  Receipt Date: 20130122
  Transmission Date: 20140127
  Serious: Yes (Hospitalization)
  Sender: FDA-Public Use
  Company Number: FR-PFIZER INC-2013022315

PATIENT
  Age: 5 Day
  Sex: Male

DRUGS (7)
  1. AMIODARONE HCL [Suspect]
     Indication: SUPRAVENTRICULAR TACHYCARDIA
     Dosage: 50 MG, DAILY
     Route: 048
     Dates: start: 20121117, end: 20121118
  2. AMIODARONE HCL [Suspect]
     Dosage: 35 MG, DAILY
     Route: 048
     Dates: start: 20121119, end: 20121215
  3. AMOXICILLIN [Suspect]
     Indication: INFECTION
     Dosage: UNK
     Route: 042
     Dates: start: 20121114, end: 20121117
  4. CLAFORAN [Suspect]
     Indication: INFECTION
     Dosage: UNK
     Route: 042
     Dates: start: 20121114, end: 20121117
  5. HYPNOVEL [Suspect]
     Indication: SEDATION
     Dosage: 30 UG, UNK
     Route: 042
     Dates: start: 20121116, end: 20121117
  6. SUFENTA [Suspect]
     Indication: SEDATION
     Dosage: 0.3 UG, UNK
     Route: 042
     Dates: start: 20121116, end: 20121117
  7. GENTAMICIN [Suspect]
     Indication: INFECTION
     Dosage: UNK
     Route: 042
     Dates: start: 20121114, end: 20121117

REACTIONS (2)
  - Abdominal distension [Recovering/Resolving]
  - Necrotising colitis [Recovering/Resolving]
